FAERS Safety Report 24414640 (Version 2)
Quarter: 2024Q4

REPORT INFORMATION
  Report Type: Spontaneous
  Country: IN (occurrence: IN)
  Receive Date: 20241009
  Receipt Date: 20241017
  Transmission Date: 20250115
  Serious: Yes (Other)
  Sender: ALKEM
  Company Number: IN-ALKEM LABORATORIES LIMITED-IN-ALKEM-2024-22980

PATIENT
  Age: 51 Year
  Sex: Male

DRUGS (2)
  1. OLANZAPINE [Suspect]
     Active Substance: OLANZAPINE
     Indication: Schizophrenia
     Dosage: 22.5 MILLIGRAM
     Route: 065
  2. CILNIDIPINE [Concomitant]
     Active Substance: CILNIDIPINE
     Indication: Hypertension
     Dosage: 10 MILLIGRAM
     Route: 065

REACTIONS (4)
  - Choroidal effusion [Unknown]
  - Angle closure glaucoma [Recovering/Resolving]
  - Urinary retention [Recovering/Resolving]
  - Urethral spasm [Recovering/Resolving]
